FAERS Safety Report 9669795 (Version 2)
Quarter: 2014Q1

REPORT INFORMATION
  Report Type: Spontaneous
  Country: US (occurrence: US)
  Receive Date: 20131105
  Receipt Date: 20140312
  Transmission Date: 20141002
  Serious: Yes (Hospitalization, Other)
  Sender: FDA-Public Use
  Company Number: US-BAYER-2013-133439

PATIENT
  Age: 47 Year
  Sex: Female
  Weight: 70.3 kg

DRUGS (7)
  1. YASMIN [Suspect]
     Dosage: UNK
     Dates: start: 2008, end: 2009
  2. YAZ [Suspect]
     Dosage: UNK
     Dates: start: 2008, end: 2009
  3. OCELLA [Suspect]
     Dosage: UNK
     Dates: start: 2008, end: 2009
  4. ALLEGRA-D [Concomitant]
     Dosage: 12 HOUR
  5. AMOXICILLIN [Concomitant]
     Dosage: 500 MG, UNK
  6. AMBIEN [Concomitant]
     Dosage: 10 MG,DAILY
     Route: 048
  7. ATIVAN [Concomitant]
     Dosage: 0.5 MG, DAILY AS NEEDED.

REACTIONS (13)
  - Portal vein thrombosis [Recovered/Resolved]
  - Splenic vein thrombosis [None]
  - Hepatic vein thrombosis [Recovered/Resolved]
  - Cholecystitis chronic [None]
  - Biliary dyskinesia [None]
  - Thrombosis [None]
  - Abdominal pain [None]
  - Pain [None]
  - Injury [None]
  - General physical health deterioration [None]
  - Anxiety [None]
  - Emotional distress [None]
  - Pain [None]
